FAERS Safety Report 8075717-0 (Version None)
Quarter: 2012Q1

REPORT INFORMATION
  Report Type: 
  Country: None (occurrence: None)
  Receive Date: 20120127
  Receipt Date: 20100224
  Transmission Date: 20120608
  Serious: Yes (Other)
  Sender: FDA-Public Use
  Company Number: CA-ABBOTT-10P-028-0628809-00

PATIENT
  Age: 44 Year
  Sex: Male

DRUGS (1)
  1. MAVIK [Suspect]
     Indication: HYPERTENSION

REACTIONS (1)
  - RENAL FAILURE [None]
